FAERS Safety Report 8354921-8 (Version None)
Quarter: 2012Q2

REPORT INFORMATION
  Report Type: 
  Country: None (occurrence: None)
  Receive Date: 20120511
  Receipt Date: 20120508
  Transmission Date: 20120825
  Serious: Yes (Disabling, Other)
  Sender: FDA-Public Use
  Company Number: US-PFIZER INC-2012087507

PATIENT
  Sex: Female
  Weight: 67 kg

DRUGS (7)
  1. RELPAX [Suspect]
     Indication: MIGRAINE
     Dosage: 40 MG, AS NEEDED
     Route: 048
  2. KLONOPIN [Concomitant]
     Dosage: UNK
  3. LYRICA [Suspect]
     Indication: PAIN MANAGEMENT
  4. NEXIUM [Concomitant]
     Dosage: UNK
  5. LYRICA [Suspect]
     Indication: FIBROMYALGIA
     Dosage: 100 MG, 1X/DAY
     Route: 048
  6. VYTORIN [Concomitant]
     Dosage: UNK
  7. PROZAC [Concomitant]
     Dosage: UNK

REACTIONS (3)
  - FIBROMYALGIA [None]
  - MUSCULAR WEAKNESS [None]
  - RHEUMATOID ARTHRITIS [None]
